FAERS Safety Report 14272123 (Version 2)
Quarter: 2018Q1

REPORT INFORMATION
  Report Type: Spontaneous
  Country: IT (occurrence: IT)
  Receive Date: 20171211
  Receipt Date: 20180111
  Transmission Date: 20180508
  Serious: Yes (Hospitalization, Other)
  Sender: FDA-Public Use
  Company Number: IT-OTSUKA-2017_000024

PATIENT
  Age: 15 Year
  Sex: Male

DRUGS (1)
  1. ABILIFY [Suspect]
     Active Substance: ARIPIPRAZOLE
     Indication: PRODUCT USED FOR UNKNOWN INDICATION
     Dosage: 5 MG, QD
     Route: 048
     Dates: start: 20160101, end: 20161223

REACTIONS (5)
  - Dysuria [Unknown]
  - Pancreatitis acute [Unknown]
  - Constipation [Unknown]
  - Faecaloma [Unknown]
  - Vomiting [Unknown]

NARRATIVE: CASE EVENT DATE: 20161221
